FAERS Safety Report 5152607-4 (Version None)
Quarter: 2006Q4

REPORT INFORMATION
  Report Type: 
  Country: None (occurrence: None)
  Receive Date: 20061109
  Receipt Date: 20061025
  Transmission Date: 20070319
  Serious: Yes (Other)
  Sender: FDA-Public Use
  Company Number: T200601126

PATIENT
  Age: 6 Year
  Sex: Male

DRUGS (5)
  1. HEXABRIX [Suspect]
     Indication: ANGIOGRAM
     Dosage: 10 ML, SINGLE, INTRAVENOUS
     Route: 042
     Dates: start: 20060721, end: 20060721
  2. THIOPENTAL SODIUM [Suspect]
     Indication: ANAESTHESIA
     Dosage: 100 MG, SINGLE, INTRAVENOUS
     Route: 042
     Dates: start: 20060721, end: 20060721
  3. VECURONIUM BROMIDE [Suspect]
     Indication: ANAESTHESIA
     Dosage: 3 MG, SINGLE, INTRAVENOUS
     Route: 042
     Dates: start: 20060721, end: 20060721
  4. FENTANYL CITRATE [Suspect]
     Indication: ANAESTHESIA
     Dosage: 0.1 MG, SINGLE
     Dates: start: 20060721, end: 20060721
  5. SEVOFLURANE [Suspect]
     Indication: ANAESTHESIA
     Dosage: SINGLE, OTHER
     Route: 050
     Dates: start: 20060721, end: 20060721

REACTIONS (5)
  - ANAPHYLACTIC SHOCK [None]
  - BRADYCARDIA [None]
  - HYPERSENSITIVITY [None]
  - OXYGEN SATURATION DECREASED [None]
  - PROCEDURAL COMPLICATION [None]
